FAERS Safety Report 6457990-5 (Version None)
Quarter: 2009Q4

REPORT INFORMATION
  Report Type: 
  Country: None (occurrence: None)
  Receive Date: 20091125
  Receipt Date: 20091120
  Transmission Date: 20100525
  Serious: Yes (Death)
  Sender: FDA-Public Use
  Company Number: TH-CELGENEUS-155-C5013-09111338

PATIENT
  Sex: Female

DRUGS (6)
  1. CC-5013 [Suspect]
     Indication: MULTIPLE MYELOMA
     Route: 048
     Dates: start: 20090930, end: 20091029
  2. WARFARIN SODIUM [Concomitant]
     Indication: ANTICOAGULANT THERAPY
     Route: 065
  3. WARFARIN SODIUM [Concomitant]
     Route: 065
  4. DEXAMETHASONE TAB [Concomitant]
     Indication: MULTIPLE MYELOMA
     Route: 065
  5. PREDNISOLONE [Concomitant]
     Indication: MULTIPLE MYELOMA
     Dosage: 9 TABLETS
     Route: 065
  6. PAIN KILLER [Concomitant]
     Indication: DRUG THERAPY
     Route: 065

REACTIONS (1)
  - CEREBRAL HAEMORRHAGE [None]
